FAERS Safety Report 9903048 (Version 2)
Quarter: 2014Q1

REPORT INFORMATION
  Report Type: Spontaneous
  Country: US (occurrence: US)
  Receive Date: 20140217
  Receipt Date: 20140225
  Transmission Date: 20141002
  Serious: Yes (Other)
  Sender: FDA-Public Use
  Company Number: US-BAXTER-2014BAX006798

PATIENT
  Age: 1 Year
  Sex: Female

DRUGS (1)
  1. TISSEEL VH S/D [Suspect]
     Indication: CRANIOTOMY
     Dates: start: 201310, end: 201310

REACTIONS (1)
  - Acquired haemophilia [Not Recovered/Not Resolved]
